FAERS Safety Report 21259817 (Version 2)
Quarter: 2022Q4

REPORT INFORMATION
  Report Type: Spontaneous
  Country: PL (occurrence: PL)
  Receive Date: 20220826
  Receipt Date: 20221008
  Transmission Date: 20230113
  Serious: Yes (Hospitalization, Other)
  Sender: FDA-Public Use
  Company Number: PL-TEVA-2022-PL-2066824

PATIENT
  Age: 54 Year
  Sex: Female

DRUGS (10)
  1. METHOTREXATE [Suspect]
     Active Substance: METHOTREXATE
     Indication: Rheumatoid arthritis
     Route: 065
  2. ZOLPIDEM [Suspect]
     Active Substance: ZOLPIDEM TARTRATE
     Indication: Insomnia
     Dosage: BEFORE BEDTIME
     Route: 048
  3. ZOLPIDEM [Suspect]
     Active Substance: ZOLPIDEM TARTRATE
     Dosage: TO 6-8 TABLETS PER DAY, 1 TABLET EVERY HOUR AT NIGHT
     Route: 048
  4. ACEMETACIN [Suspect]
     Active Substance: ACEMETACIN
     Indication: Rheumatoid arthritis
     Dosage: 90 MILLIGRAM DAILY;
     Route: 065
  5. METHYLPREDNISOLONE [Suspect]
     Active Substance: METHYLPREDNISOLONE
     Indication: Rheumatoid arthritis
     Dosage: 4 MILLIGRAM DAILY;
     Route: 065
  6. ALPRAZOLAM [Suspect]
     Active Substance: ALPRAZOLAM
     Indication: Insomnia
     Dosage: IN THE EVENING
     Route: 065
  7. ALPRAZOLAM [Suspect]
     Active Substance: ALPRAZOLAM
     Dosage: 2 MILLIGRAM DAILY; INCREASING THE DOSE GRADUALLY
     Route: 065
  8. ALPRAZOLAM [Suspect]
     Active Substance: ALPRAZOLAM
     Dosage: 3 MILLIGRAM DAILY;
     Route: 065
  9. ESTAZOLAM [Suspect]
     Active Substance: ESTAZOLAM
     Indication: Insomnia
     Dosage: 30 MINUTES BEFORE BEDTIME
     Route: 065
  10. ESTAZOLAM [Suspect]
     Active Substance: ESTAZOLAM
     Dosage: 6-8 TABLETS A DAY,1 TABLET EVERY HOUR AT NIGHT
     Route: 048

REACTIONS (5)
  - Intentional product misuse [Unknown]
  - Arthropathy [Recovering/Resolving]
  - Drug intolerance [Unknown]
  - Treatment failure [Unknown]
  - Drug effect less than expected [Unknown]
